FAERS Safety Report 4340355-X (Version None)
Quarter: 2004Q2

REPORT INFORMATION
  Report Type: 
  Country: None (occurrence: None)
  Receive Date: 20040412
  Receipt Date: 20040326
  Transmission Date: 20050107
  Serious: Yes (Death)
  Sender: FDA-Public Use
  Company Number: DSA_24085-2004

PATIENT
  Age: 47 Year
  Sex: Male

DRUGS (12)
  1. HERBESSER R [Suspect]
     Indication: CARDIAC FAILURE CHRONIC
     Dosage: 200 MG Q DAY PO
     Route: 048
     Dates: end: 20040117
  2. LASIX [Suspect]
     Indication: CARDIAC FAILURE CHRONIC
     Dosage: 20 MG Q DAY PO
     Route: 048
     Dates: end: 20040117
  3. LASIX [Suspect]
     Indication: PROPHYLAXIS
     Dosage: 20 MG Q DAY PO
     Route: 048
     Dates: end: 20040117
  4. BISOPROLOL FUMARATE [Suspect]
     Indication: CARDIAC FAILURE CHRONIC
     Dosage: 0.625 MG Q DAY PO
     Route: 048
     Dates: start: 20030327, end: 20030409
  5. BISOPROLOL FUMARATE [Suspect]
     Indication: CARDIAC FAILURE CHRONIC
     Dosage: 1.25 MG Q DAY PO
     Route: 048
     Dates: start: 20030410, end: 20030423
  6. BLINDED STUDY DRUG (BISOPROLOL FUMARATE OR PLACEBO) [Suspect]
     Indication: CARDIAC FAILURE CHRONIC
     Dosage: 1.25 MG Q DAY PO
     Route: 048
     Dates: start: 20030424, end: 20030507
  7. BLINDED STUDY DRUG (BISOPROLOL FUMARATE OR PLACEBO) [Suspect]
     Indication: CARDIAC FAILURE CHRONIC
     Dosage: 2.5 MG Q DAY PO
     Route: 048
     Dates: start: 20030508, end: 20030604
  8. BLINDED STUDY DRUG (BISOPROLOL FUMARATE OR PLACEBO) [Suspect]
     Indication: CARDIAC FAILURE CHRONIC
     Dosage: 5 MG Q DAY PO
     Route: 048
     Dates: start: 20030605, end: 20040117
  9. ASPIRIN [Suspect]
     Indication: PROPHYLAXIS
     Dosage: 200 MG Q DAY PO
     Route: 048
     Dates: start: 20030326, end: 20040117
  10. ALDACTONE-A [Suspect]
     Indication: CARDIAC FAILURE CHRONIC
     Dosage: 25 MG Q DAY PO
     Route: 048
     Dates: start: 20030326, end: 20040117
  11. NU LOTAN [Suspect]
     Indication: CARDIAC FAILURE CHRONIC
     Dosage: 25 MG Q DAY PO
     Route: 048
     Dates: start: 20030326, end: 20040117
  12. GENTACIN [Concomitant]

REACTIONS (17)
  - ACUTE MYOCARDIAL INFARCTION [None]
  - ALANINE AMINOTRANSFERASE INCREASED [None]
  - ASPARTATE AMINOTRANSFERASE INCREASED [None]
  - BLOOD CHOLESTEROL INCREASED [None]
  - BLOOD LACTATE DEHYDROGENASE INCREASED [None]
  - BLOOD POTASSIUM INCREASED [None]
  - BLOOD TRIGLYCERIDES INCREASED [None]
  - BRAIN NATRIURETIC PEPTIDE INCREASED [None]
  - CARDIAC ARREST [None]
  - CARDIO-RESPIRATORY ARREST [None]
  - DYSPNOEA EXERTIONAL [None]
  - EJECTION FRACTION DECREASED [None]
  - FALL [None]
  - PROTEIN TOTAL INCREASED [None]
  - SUDDEN DEATH [None]
  - VENTRICULAR FIBRILLATION [None]
  - WHITE BLOOD CELL COUNT INCREASED [None]
